FAERS Safety Report 24212995 (Version 1)
Quarter: 2024Q3

REPORT INFORMATION
  Report Type: Spontaneous
  Country: TR (occurrence: TR)
  Receive Date: 20240815
  Receipt Date: 20240815
  Transmission Date: 20241017
  Serious: Yes (Death, Life-Threatening, Hospitalization)
  Sender: BRISTOL MYERS SQUIBB
  Company Number: TR-BRISTOL-MYERS SQUIBB COMPANY-2024-128419

PATIENT
  Age: 65 Year
  Sex: Female

DRUGS (2)
  1. NIVOLUMAB [Suspect]
     Active Substance: NIVOLUMAB
     Indication: Malignant melanoma
     Dosage: DOSE : NIVOLUMAB 1MG
  2. IPILIMUMAB [Suspect]
     Active Substance: IPILIMUMAB
     Indication: Malignant melanoma
     Dosage: DOSE :IPILIMUMAB 3MG

REACTIONS (3)
  - Swelling face [Fatal]
  - Muscular weakness [Fatal]
  - Blood creatine phosphokinase increased [Fatal]
